FAERS Safety Report 6865693-8 (Version None)
Quarter: 2010Q3

REPORT INFORMATION
  Report Type: 
  Country: None (occurrence: None)
  Receive Date: 20100720
  Receipt Date: 20100712
  Transmission Date: 20110219
  Serious: Yes (Hospitalization)
  Sender: FDA-Public Use
  Company Number: 20097374

PATIENT
  Age: 34 Year
  Sex: Female

DRUGS (1)
  1. BACLOFEN [Suspect]
     Indication: MUSCLE SPASTICITY
     Dosage: 450 MCG, DAILY, INTRATHECAL
     Route: 037
     Dates: start: 20071024

REACTIONS (1)
  - PNEUMONIA [None]
